FAERS Safety Report 16942014 (Version 1)
Quarter: 2019Q4

REPORT INFORMATION
  Report Type: Spontaneous
  Country: US (occurrence: US)
  Receive Date: 20191021
  Receipt Date: 20191021
  Transmission Date: 20200122
  Serious: Yes (Hospitalization)
  Sender: FDA-Public Use
  Company Number: US-EXELA PHARMA SCIENCES, LLC-2019EXL00010

PATIENT
  Age: 47 Year
  Sex: Male

DRUGS (1)
  1. VERAPAMIL HYDROCHLORIDE. [Suspect]
     Active Substance: VERAPAMIL HYDROCHLORIDE
     Dosage: PILL BOTTLE WAS FOUND NEXT TO THE PATIENT WITH THE MAJORITY OF THE PILLS MISSING
     Route: 048

REACTIONS (4)
  - Toxicity to various agents [Recovered/Resolved]
  - Cardiogenic shock [Recovered/Resolved]
  - Intentional overdose [Recovered/Resolved]
  - Unresponsive to stimuli [Recovered/Resolved]
